FAERS Safety Report 4860822-X (Version None)
Quarter: 2005Q4

REPORT INFORMATION
  Report Type: 
  Country: None (occurrence: None)
  Receive Date: 20051216
  Receipt Date: 20051202
  Transmission Date: 20060501
  Serious: Yes (Other)
  Sender: FDA-Public Use
  Company Number: GB200512000479

PATIENT
  Age: 43 Year
  Sex: Male

DRUGS (3)
  1. ZYPREXA [Suspect]
  2. PAROXETINE HCL [Concomitant]
  3. EPILUM (VALPROATE SODIUM) [Concomitant]

REACTIONS (2)
  - ECZEMA [None]
  - SKIN EXFOLIATION [None]
